FAERS Safety Report 7119024-9 (Version None)
Quarter: 2010Q4

REPORT INFORMATION
  Report Type: 
  Country: None (occurrence: None)
  Receive Date: 20101123
  Receipt Date: 20101116
  Transmission Date: 20110411
  Serious: Yes (Hospitalization)
  Sender: FDA-Public Use
  Company Number: A0893552A

PATIENT
  Sex: Female
  Weight: 78 kg

DRUGS (11)
  1. AMOXICILLIN AND CLAVULANATE POTASSIUM [Suspect]
     Indication: TONSILLITIS
     Dosage: 875MG TWICE PER DAY
     Route: 065
     Dates: start: 20101113, end: 20101113
  2. MAREVAN [Concomitant]
  3. OMEPRAZOLE [Concomitant]
  4. PREDNISONE [Concomitant]
  5. CHLOROQUINE PHOSPHATE [Concomitant]
  6. BALCOR [Concomitant]
  7. CALCIUM [Concomitant]
  8. PRIMOLUT [Concomitant]
  9. CYCLOSPORINE [Concomitant]
  10. CHOLECALCIFEROL + VITAMIN A [Concomitant]
  11. POTASSIUM CHLORIDE [Concomitant]

REACTIONS (4)
  - PYREXIA [None]
  - RASH [None]
  - TONGUE OEDEMA [None]
  - URTICARIA [None]
